FAERS Safety Report 10994211 (Version 2)
Quarter: 2015Q2

REPORT INFORMATION
  Report Type: Spontaneous
  Country: US (occurrence: None)
  Receive Date: 20150403
  Receipt Date: 20150623
  Transmission Date: 20150821
  Serious: No
  Sender: FDA-Public Use
  Company Number: SP09273

PATIENT
  Sex: Female

DRUGS (3)
  1. MS CONTIN [Concomitant]
     Active Substance: MORPHINE SULFATE
  2. MS IR [Concomitant]
     Active Substance: MORPHINE SULFATE
  3. RELISTOR [Suspect]
     Active Substance: METHYLNALTREXONE BROMIDE
     Indication: CONSTIPATION
     Route: 058

REACTIONS (3)
  - Arrhythmia [None]
  - Abdominal pain upper [None]
  - Chest pain [None]
